FAERS Safety Report 6490967-2 (Version None)
Quarter: 2009Q4

REPORT INFORMATION
  Report Type: 
  Country: None (occurrence: None)
  Receive Date: 20091211
  Receipt Date: 20091201
  Transmission Date: 20100525
  Serious: Yes (Hospitalization)
  Sender: FDA-Public Use
  Company Number: CA-BRISTOL-MYERS SQUIBB COMPANY-14878029

PATIENT
  Age: 62 Year
  Sex: Male

DRUGS (6)
  1. BMS690514 [Suspect]
     Indication: NEOPLASM MALIGNANT
     Route: 048
     Dates: start: 20091029
  2. CARBOPLATIN [Suspect]
     Indication: NEOPLASM MALIGNANT
     Dosage: NO.OF COURSES:2
     Route: 042
     Dates: start: 20091026, end: 20091116
  3. TAXOL [Suspect]
     Indication: NEOPLASM MALIGNANT
     Dosage: NO.OF COURSES:2
     Route: 042
     Dates: start: 20091026, end: 20091116
  4. OXYCONTIN [Concomitant]
     Dates: start: 20090715
  5. NORVASC [Concomitant]
     Dates: start: 20091019
  6. CESAMET [Concomitant]
     Dates: start: 20090817

REACTIONS (3)
  - ANAEMIA [None]
  - DEEP VEIN THROMBOSIS [None]
  - FEBRILE NEUTROPENIA [None]
